FAERS Safety Report 7639980-X (Version None)
Quarter: 2011Q3

REPORT INFORMATION
  Report Type: 
  Country: None (occurrence: None)
  Receive Date: 20110727
  Receipt Date: 20110720
  Transmission Date: 20111222
  Serious: Yes (Other)
  Sender: FDA-Public Use
  Company Number: US-ROCHE-791221

PATIENT
  Sex: Female

DRUGS (3)
  1. FOSAMAX [Suspect]
     Indication: OSTEOPOROSIS
     Dosage: INDICATION : OSTEOPENIA
     Route: 065
     Dates: start: 19990101, end: 20060601
  2. BONIVA [Suspect]
     Indication: OSTEOPOROSIS
     Dosage: INDICATION : OSTEOPENIA
     Route: 065
     Dates: start: 20060601, end: 20070301
  3. ACTONEL [Suspect]
     Indication: OSTEOPOROSIS
     Dosage: INDICATION: OSPTOPENIA.
     Route: 065
     Dates: start: 20070301, end: 20081201

REACTIONS (2)
  - OSTEONECROSIS OF JAW [None]
  - EMOTIONAL DISTRESS [None]
